FAERS Safety Report 25463294 (Version 2)
Quarter: 2025Q3

REPORT INFORMATION
  Report Type: Report from Study
  Country: ZA (occurrence: ZA)
  Receive Date: 20250620
  Receipt Date: 20250704
  Transmission Date: 20251020
  Serious: Yes (Hospitalization, Other)
  Sender: TEVA
  Company Number: ZA-TEVA-VS-3337866

PATIENT
  Age: 40 Year
  Sex: Female
  Weight: 118 kg

DRUGS (5)
  1. FINGOLIMOD [Suspect]
     Active Substance: FINGOLIMOD
     Indication: Multiple sclerosis
     Route: 048
     Dates: start: 20241007
  2. PERINDOPRIL [Concomitant]
     Active Substance: PERINDOPRIL
     Indication: Hypertension
     Route: 048
     Dates: start: 2025
  3. Gluconorm [Concomitant]
     Indication: Diabetes mellitus
     Route: 048
     Dates: start: 2022
  4. DULOXETINE HYDROCHLORIDE [Concomitant]
     Active Substance: DULOXETINE HYDROCHLORIDE
     Indication: Depression
     Route: 048
     Dates: start: 2012
  5. DOTHIEPIN HYDROCHLORIDE [Concomitant]
     Active Substance: DOTHIEPIN HYDROCHLORIDE
     Indication: Post-traumatic stress disorder
     Route: 048
     Dates: start: 2024

REACTIONS (9)
  - Staphylococcal infection [Recovering/Resolving]
  - Lymphopenia [Unknown]
  - Neutrophilia [Unknown]
  - Pain [Recovering/Resolving]
  - Swelling face [Recovering/Resolving]
  - Subcutaneous abscess [Recovered/Resolved]
  - Muscular weakness [Unknown]
  - Back pain [Not Recovered/Not Resolved]
  - Nerve compression [Not Recovered/Not Resolved]

NARRATIVE: CASE EVENT DATE: 20250101
